FAERS Safety Report 4490192-0 (Version None)
Quarter: 2004Q4

REPORT INFORMATION
  Report Type: 
  Country: None (occurrence: None)
  Receive Date: 20041101
  Receipt Date: 20041022
  Transmission Date: 20050328
  Serious: Yes (Disabling)
  Sender: FDA-Public Use
  Company Number: GB-ABBOTT-04P-166-0278433-00

PATIENT
  Sex: Male

DRUGS (3)
  1. EPILIM LIQUID [Suspect]
     Indication: EPILEPSY
     Route: 048
     Dates: start: 20040420, end: 20040521
  2. MIDAZOLAM HCL [Concomitant]
     Indication: EPILEPSY
  3. DIAZEPAM [Concomitant]
     Indication: EPILEPSY
     Route: 054

REACTIONS (3)
  - DYSPNOEA [None]
  - PSYCHOMOTOR HYPERACTIVITY [None]
  - WHEEZING [None]
